FAERS Safety Report 24652491 (Version 1)
Quarter: 2024Q4

REPORT INFORMATION
  Report Type: Spontaneous
  Country: US (occurrence: None)
  Receive Date: 20241122
  Receipt Date: 20241122
  Transmission Date: 20250115
  Serious: No
  Sender: Public
  Company Number: None

PATIENT
  Age: 65 Year
  Sex: Male
  Weight: 56 kg

DRUGS (4)
  1. SITAGLIPTIN [Suspect]
     Active Substance: SITAGLIPTIN
     Indication: Diabetes mellitus
     Dosage: FREQUENCY : DAILY;?
     Route: 048
  2. meclizine 25mg [Concomitant]
  3. glipizide 5 mg [Concomitant]
  4. empagliflozin 12.5 mg/metformin 1000 mg [Concomitant]

REACTIONS (8)
  - Dizziness [None]
  - Dizziness [None]
  - Nausea [None]
  - Balance disorder [None]
  - Impaired driving ability [None]
  - Fall [None]
  - Hypoglycaemia [None]
  - Blood glucose increased [None]

NARRATIVE: CASE EVENT DATE: 20240914
